FAERS Safety Report 18785504 (Version 1)
Quarter: 2021Q1

REPORT INFORMATION
  Report Type: Spontaneous
  Country: CA (occurrence: CA)
  Receive Date: 20210125
  Receipt Date: 20210125
  Transmission Date: 20210419
  Serious: Yes (Other)
  Sender: FDA-Public Use
  Company Number: CA-CELGENEUS-CAN-20210104863

PATIENT
  Sex: Female

DRUGS (30)
  1. ABRAXANE [Suspect]
     Active Substance: PACLITAXEL
     Indication: BREAST CANCER METASTATIC
  2. TAXOL [Suspect]
     Active Substance: PACLITAXEL
     Indication: HORMONE RECEPTOR POSITIVE BREAST CANCER
  3. XELODA [Suspect]
     Active Substance: CAPECITABINE
     Indication: BREAST CANCER METASTATIC
  4. ABRAXANE [Suspect]
     Active Substance: PACLITAXEL
     Indication: HORMONE RECEPTOR POSITIVE BREAST CANCER
  5. FULVESTRANT. [Suspect]
     Active Substance: FULVESTRANT
     Indication: BREAST CANCER METASTATIC
  6. PROCYTOX [Suspect]
     Active Substance: CYCLOPHOSPHAMIDE
     Indication: HUMAN EPIDERMAL GROWTH FACTOR RECEPTOR NEGATIVE
     Route: 065
  7. PROCYTOX [Suspect]
     Active Substance: CYCLOPHOSPHAMIDE
     Indication: HORMONE RECEPTOR POSITIVE BREAST CANCER
  8. PROCYTOX [Suspect]
     Active Substance: CYCLOPHOSPHAMIDE
     Indication: BREAST CANCER METASTATIC
  9. XELODA [Suspect]
     Active Substance: CAPECITABINE
     Indication: HORMONE RECEPTOR POSITIVE BREAST CANCER
  10. LETROZOLE. [Suspect]
     Active Substance: LETROZOLE
     Indication: BREAST CANCER METASTATIC
  11. TAMOXIFEN [Suspect]
     Active Substance: TAMOXIFEN
     Indication: HUMAN EPIDERMAL GROWTH FACTOR RECEPTOR NEGATIVE
     Route: 048
  12. TAMOXIFEN [Suspect]
     Active Substance: TAMOXIFEN
     Indication: HORMONE RECEPTOR POSITIVE BREAST CANCER
  13. EXEMESTANE. [Suspect]
     Active Substance: EXEMESTANE
     Indication: HUMAN EPIDERMAL GROWTH FACTOR RECEPTOR NEGATIVE
     Route: 048
  14. PMS?EPIRUBICIN [Suspect]
     Active Substance: EPIRUBICIN HYDROCHLORIDE
     Indication: HUMAN EPIDERMAL GROWTH FACTOR RECEPTOR NEGATIVE
     Route: 042
  15. PMS?EPIRUBICIN [Suspect]
     Active Substance: EPIRUBICIN HYDROCHLORIDE
     Indication: HORMONE RECEPTOR POSITIVE BREAST CANCER
  16. TAXOL [Suspect]
     Active Substance: PACLITAXEL
     Indication: HUMAN EPIDERMAL GROWTH FACTOR RECEPTOR NEGATIVE
     Route: 030
  17. ABRAXANE [Suspect]
     Active Substance: PACLITAXEL
     Indication: HUMAN EPIDERMAL GROWTH FACTOR RECEPTOR NEGATIVE
     Route: 042
  18. LETROZOLE. [Suspect]
     Active Substance: LETROZOLE
     Indication: HUMAN EPIDERMAL GROWTH FACTOR RECEPTOR NEGATIVE
     Route: 048
  19. TAMOXIFEN [Suspect]
     Active Substance: TAMOXIFEN
     Indication: BREAST CANCER METASTATIC
  20. TAXOL [Suspect]
     Active Substance: PACLITAXEL
     Indication: BREAST CANCER METASTATIC
  21. EXEMESTANE. [Suspect]
     Active Substance: EXEMESTANE
     Indication: HORMONE RECEPTOR POSITIVE BREAST CANCER
  22. FLUOROURACIL. [Suspect]
     Active Substance: FLUOROURACIL
     Indication: BREAST CANCER METASTATIC
  23. FULVESTRANT. [Suspect]
     Active Substance: FULVESTRANT
     Indication: HORMONE RECEPTOR POSITIVE BREAST CANCER
  24. FLUOROURACIL. [Suspect]
     Active Substance: FLUOROURACIL
     Indication: HUMAN EPIDERMAL GROWTH FACTOR RECEPTOR NEGATIVE
     Route: 065
  25. FLUOROURACIL. [Suspect]
     Active Substance: FLUOROURACIL
     Indication: HORMONE RECEPTOR POSITIVE BREAST CANCER
  26. LETROZOLE. [Suspect]
     Active Substance: LETROZOLE
     Indication: HORMONE RECEPTOR POSITIVE BREAST CANCER
  27. XELODA [Suspect]
     Active Substance: CAPECITABINE
     Indication: HUMAN EPIDERMAL GROWTH FACTOR RECEPTOR NEGATIVE
     Route: 048
  28. EXEMESTANE. [Suspect]
     Active Substance: EXEMESTANE
     Indication: BREAST CANCER METASTATIC
  29. FULVESTRANT. [Suspect]
     Active Substance: FULVESTRANT
     Indication: HUMAN EPIDERMAL GROWTH FACTOR RECEPTOR NEGATIVE
     Route: 030
  30. PMS?EPIRUBICIN [Suspect]
     Active Substance: EPIRUBICIN HYDROCHLORIDE
     Indication: BREAST CANCER METASTATIC

REACTIONS (1)
  - Breast cancer metastatic [Unknown]
